FAERS Safety Report 16043897 (Version 1)
Quarter: 2019Q1

REPORT INFORMATION
  Report Type: Spontaneous
  Country: US (occurrence: US)
  Receive Date: 20190306
  Receipt Date: 20190306
  Transmission Date: 20190418
  Serious: Yes (Other)
  Sender: FDA-Public Use
  Company Number: US-SA-2019SA056941

PATIENT
  Age: 51 Year
  Sex: Male

DRUGS (4)
  1. IFN BETA 1B [Concomitant]
     Indication: MULTIPLE SCLEROSIS RELAPSE
     Dosage: UNK UNK, UNK
     Route: 065
  2. NATALIZUMAB [Concomitant]
     Active Substance: NATALIZUMAB
     Dosage: UNK UNK, UNK
     Route: 065
  3. LEMTRADA [Suspect]
     Active Substance: ALEMTUZUMAB
     Dosage: 12 MG, QD
     Route: 041
     Dates: start: 2015, end: 2015
  4. IFN BETA 1B [Concomitant]
     Indication: DISEASE PROGRESSION

REACTIONS (1)
  - Multiple sclerosis relapse [Recovering/Resolving]

NARRATIVE: CASE EVENT DATE: 2015
